FAERS Safety Report 24081360 (Version 1)
Quarter: 2024Q3

REPORT INFORMATION
  Report Type: Spontaneous
  Country: US (occurrence: US)
  Receive Date: 20240711
  Receipt Date: 20240711
  Transmission Date: 20241016
  Serious: No
  Sender: BOEHRINGER INGELHEIM
  Company Number: US-BoehringerIngelheim-2024-BI-039304

PATIENT
  Sex: Female
  Weight: 227 kg

DRUGS (1)
  1. SPEVIGO [Suspect]
     Active Substance: SPESOLIMAB-SBZO
     Indication: Product used for unknown indication
     Dosage: 900ML (1/3-1/2 OF THE 900ML DOSE HAD BEEN INFUSED)
     Dates: start: 20240711

REACTIONS (2)
  - Blood pressure increased [Recovered/Resolved]
  - Urticaria [Unknown]

NARRATIVE: CASE EVENT DATE: 20240711
